FAERS Safety Report 4276651-4 (Version None)
Quarter: 2004Q1

REPORT INFORMATION
  Report Type: 
  Country: None (occurrence: None)
  Receive Date: 20040120
  Receipt Date: 20040105
  Transmission Date: 20041129
  Serious: Yes (Other)
  Sender: FDA-Public Use
  Company Number: SUSI-2004-00002

PATIENT
  Age: 14 Year
  Sex: Male
  Weight: 49.9 kg

DRUGS (6)
  1. ADDERALL(DEXTROAMPHETAMINE SULFATE, DEXTROAMPHETAMINE SACCHARATE, AMPH [Suspect]
     Indication: ATTENTION DEFICIT/HYPERACTIVITY DISORDER
     Dates: start: 20000201, end: 20021201
  2. ADDERALL XR (AMPHETAMINE ASPARTATE, AMPHETAMINE SULFATE, DEXTROAMPHETA [Suspect]
     Indication: ATTENTION DEFICIT/HYPERACTIVITY DISORDER
     Dosage: 15 MG, 2X/DAY:BID,UNK
     Dates: start: 20021201, end: 20030101
  3. ADDERALL (AMPHETAMINE ASPARTATE, AMPHETAMINE SULFATE, DEXTROAMPHETAMIN [Suspect]
     Indication: ATTENTION DEFICIT/HYPERACTIVITY DISORDER
     Dosage: 15 MG, 2X/DAY:BID, UNK
     Dates: start: 20030101, end: 20030501
  4. NEURONTIN [Concomitant]
  5. MOTRIN [Concomitant]
  6. ASTHMA MEDICATION NOS [Concomitant]

REACTIONS (4)
  - ANGER [None]
  - CONDITION AGGRAVATED [None]
  - IMPULSIVE BEHAVIOUR [None]
  - THEFT [None]
